FAERS Safety Report 23696625 (Version 1)
Quarter: 2024Q2

REPORT INFORMATION
  Report Type: Spontaneous
  Country: DK (occurrence: DK)
  Receive Date: 20240402
  Receipt Date: 20240402
  Transmission Date: 20240716
  Serious: Yes (Other)
  Sender: FDA-Public Use
  Company Number: DK-BIOVITRUM-2024-DK-004840

PATIENT

DRUGS (1)
  1. PEGCETACOPLAN [Suspect]
     Active Substance: PEGCETACOPLAN
     Indication: Product used for unknown indication
     Dosage: INTENTION WAS TO INCREASE THE DOSAGE TO THREE TIMES A DAY

REACTIONS (2)
  - Breakthrough haemolysis [Unknown]
  - Incorrect dose administered [Unknown]
